FAERS Safety Report 18986417 (Version 58)
Quarter: 2023Q1

REPORT INFORMATION
  Report Type: Spontaneous
  Country: GB (occurrence: GB)
  Receive Date: 20210309
  Receipt Date: 20230315
  Transmission Date: 20230417
  Serious: Yes (Life-Threatening, Hospitalization, Other)
  Sender: FDA-Public Use
  Company Number: GB-MYLANLABS-2020M1095340

PATIENT
  Age: 64 Year
  Sex: Male

DRUGS (254)
  1. SIMVASTATIN [Suspect]
     Active Substance: SIMVASTATIN
     Indication: Hyperlipidaemia
     Dosage: 40 MILLIGRAM, QD
     Route: 048
  2. SIMVASTATIN [Suspect]
     Active Substance: SIMVASTATIN
     Dosage: 40 MILLIGRAM, QD
     Route: 048
  3. SIMVASTATIN [Suspect]
     Active Substance: SIMVASTATIN
     Dosage: 40 MILLIGRAM, QD
     Route: 048
  4. SIMVASTATIN [Suspect]
     Active Substance: SIMVASTATIN
     Dosage: 40 MILLIGRAM, QD
     Route: 048
  5. SIMVASTATIN [Suspect]
     Active Substance: SIMVASTATIN
     Dosage: 40 MG, QD
     Route: 048
  6. SIMVASTATIN [Suspect]
     Active Substance: SIMVASTATIN
     Dosage: 40 MILLIGRAM, QD
     Route: 048
  7. SIMVASTATIN [Suspect]
     Active Substance: SIMVASTATIN
     Dosage: 40 MILLIGRAM, QD
     Route: 048
  8. SIMVASTATIN [Suspect]
     Active Substance: SIMVASTATIN
     Dosage: 40 MILLIGRAM, QD
     Route: 048
  9. SIMVASTATIN [Suspect]
     Active Substance: SIMVASTATIN
     Dosage: 40 MILLIGRAM, QD
     Route: 048
  10. SIMVASTATIN [Suspect]
     Active Substance: SIMVASTATIN
     Dosage: 40 MG, QD
     Route: 048
  11. SIMVASTATIN [Suspect]
     Active Substance: SIMVASTATIN
     Dosage: 40 MILLIGRAM, QD
     Route: 048
  12. SIMVASTATIN [Suspect]
     Active Substance: SIMVASTATIN
     Dosage: 40 MILLIGRAM, QD
     Route: 048
  13. SIMVASTATIN [Suspect]
     Active Substance: SIMVASTATIN
     Dosage: 40 MILLIGRAM, QD
     Route: 048
  14. SIMVASTATIN [Suspect]
     Active Substance: SIMVASTATIN
     Dosage: 40 MILLIGRAM, QD
     Route: 048
  15. SIMVASTATIN [Suspect]
     Active Substance: SIMVASTATIN
     Dosage: 40 MILLIGRAM, QD
     Route: 048
  16. SIMVASTATIN [Suspect]
     Active Substance: SIMVASTATIN
     Dosage: 40 MILLIGRAM, QD
     Route: 048
  17. SIMVASTATIN [Suspect]
     Active Substance: SIMVASTATIN
     Dosage: 40 MG, QD
     Route: 048
  18. SIMVASTATIN [Suspect]
     Active Substance: SIMVASTATIN
     Dosage: 40 MG, QD
     Route: 048
  19. SIMVASTATIN [Suspect]
     Active Substance: SIMVASTATIN
     Dosage: 40 MG, 1X/DAY
     Route: 048
  20. SIMVASTATIN [Suspect]
     Active Substance: SIMVASTATIN
     Dosage: 40 MG, QD, 1X/DAY ORAL SUSPENSION
     Route: 048
  21. SIMVASTATIN [Suspect]
     Active Substance: SIMVASTATIN
     Dosage: 40 MG, QD, ORAL SUSPENSION
     Route: 048
  22. SIMVASTATIN [Suspect]
     Active Substance: SIMVASTATIN
     Dosage: 40 MG, QD (TABLET)
     Route: 048
  23. SIMVASTATIN [Suspect]
     Active Substance: SIMVASTATIN
     Dosage: 40 MG, QD
     Route: 048
  24. SIMVASTATIN [Suspect]
     Active Substance: SIMVASTATIN
     Dosage: 40 MG, QD
     Route: 048
  25. SIMVASTATIN [Suspect]
     Active Substance: SIMVASTATIN
     Dosage: 40 MG, QD;
     Route: 048
  26. SIMVASTATIN [Suspect]
     Active Substance: SIMVASTATIN
     Dosage: 40 MG, QD
     Route: 048
  27. SIMVASTATIN [Suspect]
     Active Substance: SIMVASTATIN
     Dosage: 40 MG, QD
     Route: 048
  28. SIMVASTATIN [Suspect]
     Active Substance: SIMVASTATIN
     Dosage: 40 MG, QD
     Route: 048
  29. SIMVASTATIN [Suspect]
     Active Substance: SIMVASTATIN
     Dosage: 40 MG, QD
     Route: 048
  30. SIMVASTATIN [Suspect]
     Active Substance: SIMVASTATIN
     Dosage: 40 MG, QD
     Route: 048
  31. SIMVASTATIN [Suspect]
     Active Substance: SIMVASTATIN
     Dosage: 40 MG, QD
     Route: 048
  32. SIMVASTATIN [Suspect]
     Active Substance: SIMVASTATIN
     Dosage: 40 MG, QD
     Route: 048
  33. SIMVASTATIN [Suspect]
     Active Substance: SIMVASTATIN
     Dosage: 40 MG, QD
     Route: 048
  34. SIMVASTATIN [Suspect]
     Active Substance: SIMVASTATIN
     Dosage: 40 MG, QD
     Route: 048
  35. SIMVASTATIN [Suspect]
     Active Substance: SIMVASTATIN
     Dosage: 40 MG, QD
     Route: 048
  36. SIMVASTATIN [Suspect]
     Active Substance: SIMVASTATIN
     Dosage: 40 MG, QD
     Route: 048
  37. SIMVASTATIN [Suspect]
     Active Substance: SIMVASTATIN
     Dosage: 40 MG, QD
     Route: 048
  38. SIMVASTATIN [Suspect]
     Active Substance: SIMVASTATIN
     Dosage: 40 MG, QD
     Route: 048
  39. SIMVASTATIN [Suspect]
     Active Substance: SIMVASTATIN
     Dosage: 40 MG, QD
     Route: 048
  40. SIMVASTATIN [Suspect]
     Active Substance: SIMVASTATIN
     Dosage: 40 MG, QD
     Route: 048
  41. SIMVASTATIN [Suspect]
     Active Substance: SIMVASTATIN
     Dosage: 40 MG, QD
     Route: 048
  42. SIMVASTATIN [Suspect]
     Active Substance: SIMVASTATIN
     Dosage: 40 MG, QD
     Route: 048
  43. SIMVASTATIN [Suspect]
     Active Substance: SIMVASTATIN
     Dosage: 40 MG, QD
     Route: 048
  44. SIMVASTATIN [Suspect]
     Active Substance: SIMVASTATIN
     Dosage: 40 MG, QD
     Route: 048
  45. SERTRALINE HYDROCHLORIDE [Suspect]
     Active Substance: SERTRALINE HYDROCHLORIDE
     Indication: Depressed mood
     Dosage: 40 MILLIGRAM, QD
     Route: 048
  46. SERTRALINE HYDROCHLORIDE [Suspect]
     Active Substance: SERTRALINE HYDROCHLORIDE
     Indication: Hyperlipidaemia
     Dosage: 150 MILLIGRAM
     Route: 048
  47. SERTRALINE HYDROCHLORIDE [Suspect]
     Active Substance: SERTRALINE HYDROCHLORIDE
     Indication: Schizophrenia
     Dosage: 150 MILLIGRAM
     Route: 048
  48. SERTRALINE HYDROCHLORIDE [Suspect]
     Active Substance: SERTRALINE HYDROCHLORIDE
     Indication: Depressed mood
     Dosage: 15 MG, QD, (5 MG, (3X/DAY)
     Route: 048
  49. SERTRALINE HYDROCHLORIDE [Suspect]
     Active Substance: SERTRALINE HYDROCHLORIDE
     Dosage: 150 MILLIGRAM
     Route: 048
  50. SERTRALINE HYDROCHLORIDE [Suspect]
     Active Substance: SERTRALINE HYDROCHLORIDE
     Dosage: 150 MG
     Route: 048
  51. SERTRALINE HYDROCHLORIDE [Suspect]
     Active Substance: SERTRALINE HYDROCHLORIDE
     Dosage: 150 MILLIGRAM
     Route: 048
  52. SERTRALINE HYDROCHLORIDE [Suspect]
     Active Substance: SERTRALINE HYDROCHLORIDE
     Dosage: 40 MILLIGRAM, QD
     Route: 048
  53. SERTRALINE HYDROCHLORIDE [Suspect]
     Active Substance: SERTRALINE HYDROCHLORIDE
     Dosage: 150 MG
     Route: 048
  54. SERTRALINE HYDROCHLORIDE [Suspect]
     Active Substance: SERTRALINE HYDROCHLORIDE
     Dosage: 40 MG, QD
     Route: 048
  55. SERTRALINE HYDROCHLORIDE [Suspect]
     Active Substance: SERTRALINE HYDROCHLORIDE
     Dosage: 150 MG;
     Route: 048
  56. SERTRALINE HYDROCHLORIDE [Suspect]
     Active Substance: SERTRALINE HYDROCHLORIDE
     Dosage: 150 MILLIGRAM
     Route: 048
  57. SERTRALINE HYDROCHLORIDE [Suspect]
     Active Substance: SERTRALINE HYDROCHLORIDE
     Dosage: 40 MILLIGRAM, QD
     Route: 048
  58. SERTRALINE HYDROCHLORIDE [Suspect]
     Active Substance: SERTRALINE HYDROCHLORIDE
     Dosage: 15 MILLIGRAM
     Route: 048
  59. SERTRALINE HYDROCHLORIDE [Suspect]
     Active Substance: SERTRALINE HYDROCHLORIDE
     Dosage: 15 MG
     Route: 048
  60. SERTRALINE HYDROCHLORIDE [Suspect]
     Active Substance: SERTRALINE HYDROCHLORIDE
     Dosage: 40 MG, QD (ORAL SUSPENSION)
     Route: 048
  61. SERTRALINE HYDROCHLORIDE [Suspect]
     Active Substance: SERTRALINE HYDROCHLORIDE
     Dosage: UNK; ;
  62. SERTRALINE HYDROCHLORIDE [Suspect]
     Active Substance: SERTRALINE HYDROCHLORIDE
     Dosage: 150 MG;
     Route: 048
  63. SERTRALINE HYDROCHLORIDE [Suspect]
     Active Substance: SERTRALINE HYDROCHLORIDE
     Dosage: 40 MG, QD
     Route: 048
  64. SERTRALINE HYDROCHLORIDE [Suspect]
     Active Substance: SERTRALINE HYDROCHLORIDE
     Dosage: 150 MG;
     Route: 048
  65. THIAMINE HYDROCHLORIDE [Suspect]
     Active Substance: THIAMINE HYDROCHLORIDE
     Indication: Vitamin B complex deficiency
     Dosage: 300 MG, QD
     Route: 048
  66. THIAMINE HYDROCHLORIDE [Suspect]
     Active Substance: THIAMINE HYDROCHLORIDE
     Indication: Vitamin B complex deficiency
     Dosage: 300 MG, QD
     Route: 048
  67. THIAMINE HYDROCHLORIDE [Suspect]
     Active Substance: THIAMINE HYDROCHLORIDE
     Indication: Vitamin B complex deficiency
     Dosage: 300 MG, QD
     Route: 048
  68. THIAMINE HYDROCHLORIDE [Suspect]
     Active Substance: THIAMINE HYDROCHLORIDE
     Dosage: 300 MILLIGRAM, QD (300 MILLIGRAM, ONCE A DAY)
     Route: 048
  69. THIAMINE HYDROCHLORIDE [Suspect]
     Active Substance: THIAMINE HYDROCHLORIDE
     Dosage: 300 MILLIGRAM, QD
     Route: 048
  70. THIAMINE HYDROCHLORIDE [Suspect]
     Active Substance: THIAMINE HYDROCHLORIDE
     Dosage: 300 MILLIGRAM, QD
     Route: 048
  71. THIAMINE HYDROCHLORIDE [Suspect]
     Active Substance: THIAMINE HYDROCHLORIDE
     Dosage: 300 MILLIGRAM, QD
     Route: 048
  72. THIAMINE HYDROCHLORIDE [Suspect]
     Active Substance: THIAMINE HYDROCHLORIDE
     Dosage: 300 MILLIGRAM, QD
     Route: 048
  73. THIAMINE HYDROCHLORIDE [Suspect]
     Active Substance: THIAMINE HYDROCHLORIDE
     Dosage: 300 MILLIGRAM, QD
     Route: 048
  74. THIAMINE HYDROCHLORIDE [Suspect]
     Active Substance: THIAMINE HYDROCHLORIDE
     Dosage: 300 MG, QD
     Route: 048
  75. THIAMINE HYDROCHLORIDE [Suspect]
     Active Substance: THIAMINE HYDROCHLORIDE
     Dosage: 300 MG, QD (1X/DAY)
     Route: 048
  76. THIAMINE HYDROCHLORIDE [Suspect]
     Active Substance: THIAMINE HYDROCHLORIDE
     Dosage: 300 MILLIGRAM, QD
     Route: 048
  77. THIAMINE HYDROCHLORIDE [Suspect]
     Active Substance: THIAMINE HYDROCHLORIDE
     Dosage: 300 MILLIGRAM, QD
     Route: 048
  78. THIAMINE HYDROCHLORIDE [Suspect]
     Active Substance: THIAMINE HYDROCHLORIDE
     Dosage: 300 MILLIGRAM, QD
     Route: 048
  79. THIAMINE HYDROCHLORIDE [Suspect]
     Active Substance: THIAMINE HYDROCHLORIDE
     Dosage: 300 MILLIGRAM, QD
     Route: 048
  80. THIAMINE HYDROCHLORIDE [Suspect]
     Active Substance: THIAMINE HYDROCHLORIDE
     Dosage: 300 MILLIGRAM, QD
     Route: 048
  81. THIAMINE HYDROCHLORIDE [Suspect]
     Active Substance: THIAMINE HYDROCHLORIDE
     Dosage: 300 MILLIGRAM, QD
     Route: 048
  82. THIAMINE HYDROCHLORIDE [Suspect]
     Active Substance: THIAMINE HYDROCHLORIDE
     Dosage: 300 MILLIGRAM, QD
     Route: 048
  83. THIAMINE HYDROCHLORIDE [Suspect]
     Active Substance: THIAMINE HYDROCHLORIDE
     Dosage: 300 MILLIGRAM, QD
     Route: 048
  84. THIAMINE HYDROCHLORIDE [Suspect]
     Active Substance: THIAMINE HYDROCHLORIDE
     Dosage: 300 MILLIGRAM, QD
     Route: 048
  85. THIAMINE HYDROCHLORIDE [Suspect]
     Active Substance: THIAMINE HYDROCHLORIDE
     Dosage: 300 MILLIGRAM, QD
     Route: 048
  86. THIAMINE HYDROCHLORIDE [Suspect]
     Active Substance: THIAMINE HYDROCHLORIDE
     Dosage: 300 MILLIGRAM, QD
     Route: 048
  87. THIAMINE HYDROCHLORIDE [Suspect]
     Active Substance: THIAMINE HYDROCHLORIDE
     Dosage: UNK
  88. THIAMINE HYDROCHLORIDE [Suspect]
     Active Substance: THIAMINE HYDROCHLORIDE
     Dosage: 300 MILLIGRAM, QD
     Route: 048
  89. THIAMINE HYDROCHLORIDE [Suspect]
     Active Substance: THIAMINE HYDROCHLORIDE
     Dosage: 300 MILLIGRAM, QD
     Route: 048
  90. THIAMINE HYDROCHLORIDE [Suspect]
     Active Substance: THIAMINE HYDROCHLORIDE
     Dosage: 300 MILLIGRAM, QD
     Route: 048
  91. THIAMINE HYDROCHLORIDE [Suspect]
     Active Substance: THIAMINE HYDROCHLORIDE
     Dosage: 300 MILLIGRAM, QD
     Route: 048
  92. THIAMINE HYDROCHLORIDE [Suspect]
     Active Substance: THIAMINE HYDROCHLORIDE
     Dosage: 300 MILLIGRAM, QD
     Route: 048
  93. THIAMINE HYDROCHLORIDE [Suspect]
     Active Substance: THIAMINE HYDROCHLORIDE
     Dosage: 300 MILLIGRAM, QD
     Route: 048
  94. THIAMINE HYDROCHLORIDE [Suspect]
     Active Substance: THIAMINE HYDROCHLORIDE
     Dosage: 300 MILLIGRAM, QD
     Route: 048
  95. THIAMINE HYDROCHLORIDE [Suspect]
     Active Substance: THIAMINE HYDROCHLORIDE
     Dosage: 300 MILLIGRAM, QD
     Route: 048
  96. THIAMINE HYDROCHLORIDE [Suspect]
     Active Substance: THIAMINE HYDROCHLORIDE
     Dosage: 300 MILLIGRAM, QD
     Route: 048
  97. THIAMINE HYDROCHLORIDE [Suspect]
     Active Substance: THIAMINE HYDROCHLORIDE
     Dosage: 300 MILLIGRAM, QD
     Route: 048
  98. THIAMINE HYDROCHLORIDE [Suspect]
     Active Substance: THIAMINE HYDROCHLORIDE
     Dosage: 300 MILLIGRAM, QD
     Route: 048
  99. THIAMINE HYDROCHLORIDE [Suspect]
     Active Substance: THIAMINE HYDROCHLORIDE
     Dosage: 300 MILLIGRAM, QD
     Route: 048
  100. FOLIC ACID [Suspect]
     Active Substance: FOLIC ACID
     Indication: Extrapyramidal disorder
     Dosage: 15 MILLIGRAM, Q8H (15MG, TID)
     Route: 048
  101. FOLIC ACID [Suspect]
     Active Substance: FOLIC ACID
     Indication: Blood folate decreased
     Dosage: 15 MG, TID
     Route: 048
  102. FOLIC ACID [Suspect]
     Active Substance: FOLIC ACID
     Dosage: 15 MILLIGRAM, 3 TIMES A DAY/ 45 MG, QD
     Route: 048
  103. FOLIC ACID [Suspect]
     Active Substance: FOLIC ACID
     Dosage: 5 MG, QD ORAL SOLUTION
     Route: 048
  104. FOLIC ACID [Suspect]
     Active Substance: FOLIC ACID
     Dosage: 15 MILLIGRAM, QD
     Route: 048
  105. FOLIC ACID [Suspect]
     Active Substance: FOLIC ACID
     Dosage: 5 MILLIGRAM, TID (5 MG, (3X/DAY, 15 MILLIGRAM, QD) )
     Route: 048
  106. FOLIC ACID [Suspect]
     Active Substance: FOLIC ACID
     Dosage: 5 MILLIGRAM
     Route: 048
  107. FOLIC ACID [Suspect]
     Active Substance: FOLIC ACID
     Dosage: 5 MG, TID
     Route: 048
  108. FOLIC ACID [Suspect]
     Active Substance: FOLIC ACID
     Dosage: 5 MILLIGRAM
     Route: 048
  109. FOLIC ACID [Suspect]
     Active Substance: FOLIC ACID
     Dosage: 5 MILLIGRAM
     Route: 048
  110. FOLIC ACID [Suspect]
     Active Substance: FOLIC ACID
     Dosage: 15 MG, QD, ORAL SOLUTION
     Route: 048
  111. FOLIC ACID [Suspect]
     Active Substance: FOLIC ACID
     Dosage: 45 MICROGRAM, QD
     Route: 048
  112. FOLIC ACID [Suspect]
     Active Substance: FOLIC ACID
     Dosage: 15 MG, QD (5 MG, (3X/DAY)
     Route: 048
  113. FOLIC ACID [Suspect]
     Active Substance: FOLIC ACID
     Dosage: 5 MG, QD
     Route: 048
  114. FOLIC ACID [Suspect]
     Active Substance: FOLIC ACID
     Dosage: 5 MG
     Route: 048
  115. FOLIC ACID [Suspect]
     Active Substance: FOLIC ACID
     Dosage: 15 MG, QD, (5 MG, (3X/DAY)ORAL SOLUTION
     Route: 048
  116. FOLIC ACID [Suspect]
     Active Substance: FOLIC ACID
     Dosage: 15 MG, QD, (5 MG, (3X/DAY)ORAL SOLUTION
     Route: 048
  117. FOLIC ACID [Suspect]
     Active Substance: FOLIC ACID
     Dosage: 5 MG
     Route: 048
  118. FOLIC ACID [Suspect]
     Active Substance: FOLIC ACID
     Dosage: 15 MG, QD, ORAL SOLUTION
     Route: 048
  119. FOLIC ACID [Suspect]
     Active Substance: FOLIC ACID
     Dosage: 5 MG, QD
     Route: 048
  120. FOLIC ACID [Suspect]
     Active Substance: FOLIC ACID
     Dosage: 45 MICROGRAM, QD
     Route: 065
  121. FOLIC ACID [Suspect]
     Active Substance: FOLIC ACID
     Dosage: 5 MILLIGRAM, TID (5 MG, (3X/DAY, 15 MILLIGRAM, QD)   )
  122. FOLIC ACID [Suspect]
     Active Substance: FOLIC ACID
     Dosage: 5 MILLIGRAM, TID (5 MILLIGRAM, 3 TIMES A DAY )
     Route: 048
  123. FOLIC ACID [Suspect]
     Active Substance: FOLIC ACID
     Dosage: 5 MILLIGRAM, TID (5 MILLIGRAM, 3 TIMES A DAY )
     Route: 048
  124. FOLIC ACID [Suspect]
     Active Substance: FOLIC ACID
     Dosage: 5 MILLIGRAM, TID (5 MILLIGRAM, 3 TIMES A DAY )
  125. FOLIC ACID [Suspect]
     Active Substance: FOLIC ACID
     Dosage: 45 MILLIGRAM, QD (15 MILLIGRAM, 3 TIMES A DAY)
  126. FOLIC ACID [Suspect]
     Active Substance: FOLIC ACID
     Dosage: 5 MILLIGRAM, QD
     Route: 048
  127. FOLIC ACID [Suspect]
     Active Substance: FOLIC ACID
     Dosage: 5 MILLIGRAM
     Route: 048
  128. FOLIC ACID [Suspect]
     Active Substance: FOLIC ACID
     Dosage: 45 MG, QD (5 MG, 3X/DAY, 15 MILLIGRAM, QD)
     Route: 048
  129. FOLIC ACID [Suspect]
     Active Substance: FOLIC ACID
     Dosage: 5 MILLIGRAM
     Route: 048
  130. FOLIC ACID [Suspect]
     Active Substance: FOLIC ACID
     Dosage: 5 MILLIGRAM, TID (5 MILLIGRAM, 3 TIMES A DAY )
     Route: 048
  131. FOLIC ACID [Suspect]
     Active Substance: FOLIC ACID
     Dosage: 5 MILLIGRAM, TID (5 MILLIGRAM, 3 TIMES A DAY )
     Route: 048
  132. FOLIC ACID [Suspect]
     Active Substance: FOLIC ACID
     Dosage: 15 MG, QD (5 MG, TID (3X/DAY, 15 MG, QD)
     Route: 048
  133. FOLIC ACID [Suspect]
     Active Substance: FOLIC ACID
     Dosage: 5 MILLIGRAM, TID (5 MILLIGRAM, 3 TIMES A DAY )
     Route: 048
  134. FOLIC ACID [Suspect]
     Active Substance: FOLIC ACID
     Dosage: 15 MILLIGRAM, QD (5 MG, TID (3X/DAY, 15 MG, QD)
     Route: 048
  135. FOLIC ACID [Suspect]
     Active Substance: FOLIC ACID
     Dosage: 15 MG, QD (5 MG, TID (3X/DAY, 15 MG, QD)
     Route: 048
  136. FOLIC ACID [Suspect]
     Active Substance: FOLIC ACID
     Dosage: 15 MG, QD, (5 MG, TID (3X/DAY, 15 MG, QD)
     Route: 048
  137. FOLIC ACID [Suspect]
     Active Substance: FOLIC ACID
     Dosage: 45 MICROGRAM
  138. FOLIC ACID [Suspect]
     Active Substance: FOLIC ACID
     Dosage: 45 MG, QD
     Route: 048
  139. FOLIC ACID [Suspect]
     Active Substance: FOLIC ACID
     Dosage: 5 MG, TID5 MG, Q8H
     Route: 048
  140. FOLIC ACID [Suspect]
     Active Substance: FOLIC ACID
     Dosage: 5 MILLIGRAM, QD (DAILY) ORAL SOLUTION
     Route: 048
  141. FOLIC ACID [Suspect]
     Active Substance: FOLIC ACID
     Dosage: 15 MILLIGRAM DAILY
     Route: 048
  142. FOLIC ACID [Suspect]
     Active Substance: FOLIC ACID
     Dosage: 45 UG, DAILY (QD)
     Route: 048
  143. FOLIC ACID [Suspect]
     Active Substance: FOLIC ACID
     Dosage: 15 MG, DAILY (5 MG, 3X/DAY) ORAL SOLUTION
     Route: 048
  144. FOLIC ACID [Suspect]
     Active Substance: FOLIC ACID
     Dosage: 5 MG, (3X/DAY, 15 MILLIGRAM, QD)
     Route: 048
  145. FOLIC ACID [Suspect]
     Active Substance: FOLIC ACID
     Dosage: 45 MG, QD
     Route: 065
  146. FOLIC ACID [Suspect]
     Active Substance: FOLIC ACID
     Dosage: 5 MG, Q8H
     Route: 048
  147. FOLIC ACID [Suspect]
     Active Substance: FOLIC ACID
     Dosage: 5 MG, TID, 3 TIMES A DAY ORAL SOLUTION;
     Route: 048
  148. PROCYCLIDINE [Suspect]
     Active Substance: PROCYCLIDINE
     Indication: Extrapyramidal disorder
     Dosage: 5 MILLIGRAM, TID (5 MG, 3X/DAY, 15 MILLIGRAM, QD)
     Route: 048
  149. PROCYCLIDINE [Suspect]
     Active Substance: PROCYCLIDINE
     Indication: Vitamin B complex deficiency
     Dosage: 15 MILLIGRAM, QD (5 MG, 3X/DAY, 15 MILLIGRAM, QD)
     Route: 048
  150. PROCYCLIDINE [Suspect]
     Active Substance: PROCYCLIDINE
     Dosage: 15 MILLIGRAM, QD
     Route: 048
  151. PROCYCLIDINE [Suspect]
     Active Substance: PROCYCLIDINE
     Dosage: 15 MILLIGRAM, ONCE A DAY, TID
     Route: 048
  152. PROCYCLIDINE [Suspect]
     Active Substance: PROCYCLIDINE
     Dosage: 40 MG, QD
     Route: 048
  153. PROCYCLIDINE [Suspect]
     Active Substance: PROCYCLIDINE
     Dosage: 45 MG, QD (15 MG, QD (5 MG, 3X/DAY, 15 MG, QD)
     Route: 048
  154. PROCYCLIDINE [Suspect]
     Active Substance: PROCYCLIDINE
     Dosage: 15 MILLIGRAM, QD (5 MG, 3X/DAY, 15 MILLIGRAM, QD)
     Route: 048
  155. PROCYCLIDINE [Suspect]
     Active Substance: PROCYCLIDINE
     Dosage: 5 MILLIGRAM, QD (5 MG, 3X/DAY, 15 MILLIGRAM, QD)
     Route: 048
  156. PROCYCLIDINE [Suspect]
     Active Substance: PROCYCLIDINE
     Dosage: 45 MG, QD (15 MG, QD (5 MG, 3X/DAY, 15 MG, QD)
     Route: 048
  157. PROCYCLIDINE [Suspect]
     Active Substance: PROCYCLIDINE
     Dosage: 45 MG, QD 15 MILLIGRAM, QD (5 MG, 3X/DAY, 15 MILLIGRAM,)
     Route: 048
  158. PROCYCLIDINE [Suspect]
     Active Substance: PROCYCLIDINE
     Dosage: 15 MG, QD (5 MG, 3X/DAY, 15 MILLIGRAM, QD)
     Route: 065
  159. PROCYCLIDINE [Suspect]
     Active Substance: PROCYCLIDINE
     Dosage: 15 MILLIGRAM, QD (5 MILLIGRAM, QD (5 MG, 3X/DAY, 15 MILLIGRAM, QD))
     Route: 048
  160. PROCYCLIDINE [Suspect]
     Active Substance: PROCYCLIDINE
     Dosage: 15 MG, QD
     Route: 048
  161. PROCYCLIDINE [Suspect]
     Active Substance: PROCYCLIDINE
     Dosage: 5 MG, TID, 3 TIMES A DAY
     Route: 048
  162. PROCYCLIDINE [Suspect]
     Active Substance: PROCYCLIDINE
     Dosage: 5 MG, VITAMIN B COMPLEX DEFIC;
     Route: 048
  163. PROCYCLIDINE [Suspect]
     Active Substance: PROCYCLIDINE
     Dosage: 40 MILLIGRAM, QD
     Route: 048
  164. PROCYCLIDINE [Suspect]
     Active Substance: PROCYCLIDINE
     Dosage: 15 MILLIGRAM, TID
     Route: 048
  165. PROCYCLIDINE [Suspect]
     Active Substance: PROCYCLIDINE
     Dosage: 5 MG, 3X/DAY, 15 MILLIGRAM, QD
     Route: 048
  166. PROCYCLIDINE [Suspect]
     Active Substance: PROCYCLIDINE
     Dosage: 5 MG, 3X/DAY, 15 MILLIGRAM, QD
     Route: 048
  167. PROCYCLIDINE [Suspect]
     Active Substance: PROCYCLIDINE
     Dosage: VITAMIN B COMPLEX DEFICIENCY5 MG, TID (3X/DAY, 15 MILLIGRAM, QD)
     Route: 048
  168. PROCYCLIDINE [Suspect]
     Active Substance: PROCYCLIDINE
     Dosage: 15 MILLIGRAM, QD(5 MILLIGRAM, TID)
     Route: 048
  169. PROCYCLIDINE [Suspect]
     Active Substance: PROCYCLIDINE
     Dosage: 45 MG, QD, 15 MG, QD (5 MG 3X/DAY 15 MG QD;
     Route: 048
  170. PROCYCLIDINE [Suspect]
     Active Substance: PROCYCLIDINE
     Dosage: 45 MG, QD
     Route: 048
  171. PROCYCLIDINE [Suspect]
     Active Substance: PROCYCLIDINE
     Dosage: 5 MG, TID, (5 MG, 3X/DAY, 15 MILLIGRAM, QD)UNK;
     Route: 048
  172. PROCYCLIDINE [Suspect]
     Active Substance: PROCYCLIDINE
     Dosage: UNK
  173. PROCYCLIDINE [Suspect]
     Active Substance: PROCYCLIDINE
     Dosage: 15 MG, QD (5 MILLIGRAM, TID)
     Route: 048
  174. PROCYCLIDINE [Suspect]
     Active Substance: PROCYCLIDINE
     Dosage: 40 MG, QD
     Route: 048
  175. PROCYCLIDINE [Suspect]
     Active Substance: PROCYCLIDINE
     Dosage: 15 MILLIGRAM, QD (5 MG, 3X/DAY, 15 MILLIGRAM, QD)
     Route: 048
  176. PROCYCLIDINE [Suspect]
     Active Substance: PROCYCLIDINE
     Dosage: 5 MILLIGRAM, 3 TIMES A DAY
     Route: 048
  177. PROCYCLIDINE [Suspect]
     Active Substance: PROCYCLIDINE
     Dosage: 45 MG, 1X/DAY
     Route: 048
  178. PROCYCLIDINE [Suspect]
     Active Substance: PROCYCLIDINE
     Dosage: 15 MG, TID
     Route: 048
  179. PROCYCLIDINE [Suspect]
     Active Substance: PROCYCLIDINE
     Dosage: 5 MG, 3X/DAY, 15 MILLIGRAM, QD
     Route: 048
  180. CLOZARIL [Suspect]
     Active Substance: CLOZAPINE
     Indication: Schizophrenia
     Dosage: UNK, QD
     Route: 048
     Dates: start: 20090819, end: 202011
  181. CLOZARIL [Suspect]
     Active Substance: CLOZAPINE
     Indication: Extrapyramidal disorder
     Dosage: 75 MILLIGRAM, QD (ONCE A DAY)
     Route: 048
     Dates: start: 20090819, end: 202101
  182. CLOZARIL [Suspect]
     Active Substance: CLOZAPINE
     Indication: Transient ischaemic attack
     Dosage: 75 MILLIGRAM, QD
     Route: 048
     Dates: start: 20090819, end: 202011
  183. CLOZARIL [Suspect]
     Active Substance: CLOZAPINE
     Indication: Schizophrenia
     Dosage: UNK
  184. CLOZARIL [Suspect]
     Active Substance: CLOZAPINE
     Indication: Transient ischaemic attack
     Dosage: 75 MILLIGRAM, QD
     Route: 048
     Dates: start: 20090819, end: 202011
  185. CLOZARIL [Suspect]
     Active Substance: CLOZAPINE
     Indication: Schizophrenia
     Dosage: UNK, QD
     Route: 048
     Dates: start: 20090819, end: 202011
  186. CLOZARIL [Suspect]
     Active Substance: CLOZAPINE
     Dosage: UNK
  187. CLOZARIL [Suspect]
     Active Substance: CLOZAPINE
     Dosage: 75 MG, QD
     Route: 048
     Dates: start: 20090819, end: 202011
  188. CLOZARIL [Suspect]
     Active Substance: CLOZAPINE
     Dosage: 75 MG, DAILY (QD)
     Route: 048
     Dates: start: 20090819, end: 202011
  189. CLOZARIL [Suspect]
     Active Substance: CLOZAPINE
     Dosage: 75 MILLIGRAM, QD
     Route: 048
     Dates: start: 20200819
  190. CLOZARIL [Suspect]
     Active Substance: CLOZAPINE
     Dosage: UNK
     Route: 048
  191. CLOZARIL [Suspect]
     Active Substance: CLOZAPINE
     Dosage: UNK
     Route: 065
  192. CLOZARIL [Suspect]
     Active Substance: CLOZAPINE
     Dosage: UNK
     Route: 065
  193. CLOZARIL [Suspect]
     Active Substance: CLOZAPINE
     Dosage: UNK
     Route: 065
  194. CLOZARIL [Suspect]
     Active Substance: CLOZAPINE
     Dosage: 75 MILLIGRAM, QD (75 MG, QD)
     Route: 048
     Dates: start: 20090619, end: 202011
  195. CLOZARIL [Suspect]
     Active Substance: CLOZAPINE
     Dosage: UNK
     Route: 048
     Dates: start: 20090819, end: 202011
  196. CLOZARIL [Suspect]
     Active Substance: CLOZAPINE
     Dosage: UNK
     Route: 048
     Dates: start: 20090819, end: 202011
  197. CLOZARIL [Suspect]
     Active Substance: CLOZAPINE
     Dosage: 1 DOSAGE FORM, QD
     Route: 048
     Dates: start: 20090819, end: 202011
  198. CLOZARIL [Suspect]
     Active Substance: CLOZAPINE
     Dosage: 75 MILLIGRAM, QD (75 MG, QD)
     Route: 048
     Dates: start: 20090619, end: 202011
  199. CLOZARIL [Suspect]
     Active Substance: CLOZAPINE
     Dosage: UNK
     Route: 048
  200. CLOZARIL [Suspect]
     Active Substance: CLOZAPINE
     Dosage: 1 DOSAGE FORM, QD
     Route: 048
     Dates: start: 20090819, end: 202011
  201. CLOZARIL [Suspect]
     Active Substance: CLOZAPINE
     Dosage: 1 DOSAGE FORM, QD
     Route: 048
     Dates: start: 20090819, end: 202011
  202. CLOZARIL [Suspect]
     Active Substance: CLOZAPINE
     Dosage: 1 DOSAGE FORM, QD
     Route: 048
     Dates: start: 20090819, end: 202011
  203. CLOZARIL [Suspect]
     Active Substance: CLOZAPINE
     Dosage: 75 MG, QD
     Route: 048
     Dates: start: 20090819, end: 202101
  204. CLOZARIL [Suspect]
     Active Substance: CLOZAPINE
     Dosage: 75 MILLIGRAM, ONCE A DAY
     Route: 048
     Dates: start: 20090819, end: 202011
  205. CLOPIDOGREL [Suspect]
     Active Substance: CLOPIDOGREL BISULFATE
     Indication: Schizophrenia
     Dosage: 75 MG, QD, STRENGTH: 150MG/ML)
     Route: 048
     Dates: start: 20200819, end: 202011
  206. CLOPIDOGREL [Suspect]
     Active Substance: CLOPIDOGREL BISULFATE
     Indication: Transient ischaemic attack
     Dosage: 75 MG, QD
     Route: 048
     Dates: start: 20090819
  207. CLOPIDOGREL [Suspect]
     Active Substance: CLOPIDOGREL BISULFATE
     Dosage: 75 MG, QD
     Route: 048
     Dates: start: 20200819
  208. CLOPIDOGREL [Suspect]
     Active Substance: CLOPIDOGREL BISULFATE
     Dosage: 75 MG, QD
     Route: 048
     Dates: start: 20200819
  209. CLOPIDOGREL [Suspect]
     Active Substance: CLOPIDOGREL BISULFATE
     Dosage: 75 MG, QD
     Route: 048
  210. CLOPIDOGREL [Suspect]
     Active Substance: CLOPIDOGREL BISULFATE
     Dosage: 75 MG, QD
     Route: 048
  211. CLOPIDOGREL [Suspect]
     Active Substance: CLOPIDOGREL BISULFATE
     Dosage: UNK75 MG, QD(75 MILLIGRAM, QD ((15MG/ML))
     Route: 048
  212. CLOPIDOGREL [Suspect]
     Active Substance: CLOPIDOGREL BISULFATE
     Dosage: 75 MG, QD (75 MG, 1X/DAY)
     Route: 048
     Dates: start: 202011
  213. CLOPIDOGREL [Suspect]
     Active Substance: CLOPIDOGREL BISULFATE
     Dosage: 75 MILLIGRAM, ONCE A DAY (15MG/ML) (POWDER FOR ORAL SOLUTION)
     Route: 048
     Dates: start: 20200819, end: 202011
  214. CLOPIDOGREL [Suspect]
     Active Substance: CLOPIDOGREL BISULFATE
     Dosage: 75 MG, QD
     Route: 048
  215. CLOPIDOGREL [Suspect]
     Active Substance: CLOPIDOGREL BISULFATE
     Dosage: 75 MG, 1X/DAY
     Route: 048
     Dates: start: 202011, end: 202011
  216. CLOPIDOGREL [Suspect]
     Active Substance: CLOPIDOGREL BISULFATE
     Dosage: 75 MILLIGRAM, QD (15 MG/ML)
     Route: 048
     Dates: start: 20200819, end: 202011
  217. CLOPIDOGREL [Suspect]
     Active Substance: CLOPIDOGREL BISULFATE
     Dosage: 75 MILLIGRAM, QD (POWDER FOR ORAL SOLUTION)
     Route: 048
     Dates: start: 20090819, end: 202011
  218. CLOPIDOGREL [Suspect]
     Active Substance: CLOPIDOGREL BISULFATE
     Dosage: 75 MILLIGRAM, QD (15 MG/ML)
     Route: 048
     Dates: start: 20200819
  219. CLOPIDOGREL BISULFATE [Suspect]
     Active Substance: CLOPIDOGREL BISULFATE
     Indication: Transient ischaemic attack
     Dosage: 75 MILLIGRAM, QD
     Route: 048
  220. CLOPIDOGREL BISULFATE [Suspect]
     Active Substance: CLOPIDOGREL BISULFATE
     Indication: Schizophrenia
     Dosage: 75 MILLIGRAM, QD/NOV-2020
     Route: 048
     Dates: end: 202011
  221. CLOPIDOGREL BISULFATE [Suspect]
     Active Substance: CLOPIDOGREL BISULFATE
     Dosage: 75 MILLIGRAM, QD
     Route: 048
     Dates: start: 20090819, end: 202011
  222. CLOPIDOGREL BISULFATE [Suspect]
     Active Substance: CLOPIDOGREL BISULFATE
     Dosage: 75 MILLIGRAM, QD
     Route: 048
     Dates: start: 20090819
  223. CLOPIDOGREL BISULFATE [Suspect]
     Active Substance: CLOPIDOGREL BISULFATE
     Dosage: 75 MILLIGRAM, QD
     Route: 048
     Dates: start: 20090819, end: 202011
  224. CLOPIDOGREL BISULFATE [Suspect]
     Active Substance: CLOPIDOGREL BISULFATE
     Dosage: 75 MILLIGRAM, QD
     Route: 048
     Dates: start: 20090819
  225. CLOPIDOGREL BISULFATE [Suspect]
     Active Substance: CLOPIDOGREL BISULFATE
     Dosage: 75 MILLIGRAM, QD (15MG/ML)
     Route: 048
  226. CLOPIDOGREL BISULFATE [Suspect]
     Active Substance: CLOPIDOGREL BISULFATE
     Dosage: UNK
     Route: 048
  227. CLOPIDOGREL BISULFATE [Suspect]
     Active Substance: CLOPIDOGREL BISULFATE
     Dosage: 75 MILLIGRAM, QD
     Route: 048
     Dates: end: 202011
  228. CLOPIDOGREL BISULFATE [Suspect]
     Active Substance: CLOPIDOGREL BISULFATE
     Dosage: 75 MILLIGRAM, QD
     Route: 048
  229. CLOPIDOGREL BISULFATE [Suspect]
     Active Substance: CLOPIDOGREL BISULFATE
     Dosage: 75 MILLIGRAM, QD (75 MG, 1X/DAY)
     Route: 048
     Dates: start: 202011
  230. CLOPIDOGREL BISULFATE [Suspect]
     Active Substance: CLOPIDOGREL BISULFATE
     Dosage: 75 MILLIGRAM, QD
     Route: 065
  231. CLOPIDOGREL BISULFATE [Suspect]
     Active Substance: CLOPIDOGREL BISULFATE
     Dosage: 75 MILLIGRAM, QD (15MG/ML)
     Route: 048
     Dates: start: 20200819, end: 202011
  232. CLOPIDOGREL BISULFATE [Suspect]
     Active Substance: CLOPIDOGREL BISULFATE
     Dosage: 75 MILLIGRAM, QD
     Route: 048
  233. CLOPIDOGREL BISULFATE [Suspect]
     Active Substance: CLOPIDOGREL BISULFATE
     Dosage: 75 MILLIGRAM, QD
     Route: 065
  234. CLOPIDOGREL BISULFATE [Suspect]
     Active Substance: CLOPIDOGREL BISULFATE
     Dosage: 75 MILLIGRAM, QD
     Route: 048
  235. CLOPIDOGREL BISULFATE [Suspect]
     Active Substance: CLOPIDOGREL BISULFATE
     Dosage: 75 MG, QD (75 MG, 1X/DAY)
     Route: 048
     Dates: start: 202011, end: 202011
  236. CLOPIDOGREL BISULFATE [Suspect]
     Active Substance: CLOPIDOGREL BISULFATE
     Dosage: 75 MG, 1X/DAY
     Route: 048
     Dates: start: 20090819, end: 202011
  237. CLOPIDOGREL BISULFATE [Suspect]
     Active Substance: CLOPIDOGREL BISULFATE
     Dosage: 75 MG, 1X/DAY
     Route: 048
  238. CLOZAPINE [Suspect]
     Active Substance: CLOZAPINE
     Indication: Schizophrenia
     Dosage: UNK, 75 MILLIGRAM, ONCE A DAY
     Route: 048
     Dates: start: 20090819, end: 202011
  239. CLOZAPINE [Suspect]
     Active Substance: CLOZAPINE
     Dosage: UNK, ONCE A DAY
     Route: 048
  240. CLOZAPINE [Suspect]
     Active Substance: CLOZAPINE
     Dosage: 75 MG, QD
     Route: 048
     Dates: start: 20090819, end: 202101
  241. CLOZAPINE [Suspect]
     Active Substance: CLOZAPINE
     Dosage: UNK UNK, QD; ;
     Route: 048
     Dates: start: 20090819, end: 202011
  242. CLOZAPINE [Suspect]
     Active Substance: CLOZAPINE
     Dosage: UNK;
     Route: 048
  243. CLOZAPINE [Suspect]
     Active Substance: CLOZAPINE
     Dosage: 75 MG, QD;
     Route: 048
     Dates: start: 20090619, end: 202011
  244. CLOZAPINE [Suspect]
     Active Substance: CLOZAPINE
     Dosage: 75 MG, QD;
     Route: 048
     Dates: start: 20090619, end: 202011
  245. CLOZAPINE [Suspect]
     Active Substance: CLOZAPINE
     Dosage: UNK;
     Route: 048
     Dates: start: 20090819, end: 202011
  246. CLOZAPINE [Suspect]
     Active Substance: CLOZAPINE
     Dosage: 75 MG, QD
     Route: 048
     Dates: start: 20090819, end: 202101
  247. CLOPIDOGREL BISULFATE [Suspect]
     Active Substance: CLOPIDOGREL BISULFATE
     Indication: Product used for unknown indication
     Dosage: 75 MILLIGRAM, QD
     Route: 048
     Dates: start: 20200819, end: 202011
  248. CLOPIDOGREL BISULFATE [Suspect]
     Active Substance: CLOPIDOGREL BISULFATE
     Indication: Transient ischaemic attack
     Dosage: 75 MG, QD
     Route: 048
  249. CLOPIDOGREL BISULFATE [Suspect]
     Active Substance: CLOPIDOGREL BISULFATE
     Indication: Schizophrenia
     Dosage: 75 MG, QD
     Route: 048
     Dates: start: 20090819, end: 202101
  250. CLOPIDOGREL BISULFATE [Suspect]
     Active Substance: CLOPIDOGREL BISULFATE
     Indication: Transient ischaemic attack
     Dosage: 75 MG, QD
     Route: 048
     Dates: start: 20090819, end: 202011
  251. CLOPIDOGREL BISULFATE [Suspect]
     Active Substance: CLOPIDOGREL BISULFATE
     Dosage: 75 MG, QD
     Route: 048
  252. CLOPIDOGREL BISULFATE [Suspect]
     Active Substance: CLOPIDOGREL BISULFATE
     Dosage: 75 MG, QD
     Route: 048
  253. CLOPIDOGREL BISULFATE [Suspect]
     Active Substance: CLOPIDOGREL BISULFATE
     Dosage: 75 MG, QD
     Route: 048
     Dates: start: 20200819, end: 202011
  254. CLOPIDOGREL BISULFATE [Suspect]
     Active Substance: CLOPIDOGREL BISULFATE
     Dosage: 75 MG, QD (75 MG, 1X/DAY)
     Route: 048
     Dates: start: 202011, end: 202011

REACTIONS (10)
  - Fall [Unknown]
  - Product dose omission issue [Unknown]
  - Product use issue [Unknown]
  - Off label use [Unknown]
  - Medication error [Unknown]
  - Intentional product misuse [Unknown]
  - Off label use [Unknown]
  - Hospitalisation [Unknown]
  - Vitamin B complex deficiency [Unknown]
  - Blood folate decreased [Unknown]

NARRATIVE: CASE EVENT DATE: 20201106
